FAERS Safety Report 7085356-6 (Version None)
Quarter: 2010Q4

REPORT INFORMATION
  Report Type: 
  Country: None (occurrence: None)
  Receive Date: 20101105
  Receipt Date: 20101027
  Transmission Date: 20110411
  Serious: Yes (Other)
  Sender: FDA-Public Use
  Company Number: JP-ASTRAZENECA-2010SE51266

PATIENT
  Age: 65 Year
  Sex: Male

DRUGS (4)
  1. DIPRIVAN [Suspect]
     Dosage: DOSE UNKNOWN
     Route: 042
  2. ADRENAL HORMONE PREPARATIONS [Concomitant]
     Dosage: DOSE UNKNOWN
     Route: 042
  3. GABEXATE MESILATE [Concomitant]
     Dosage: DOSE UNKNOWN
     Route: 042
  4. INTRAVENOUS HYPERALIMENTATIVE BASIC SOLUTION [Concomitant]
     Dosage: DOSE UNKNOWN
     Route: 042

REACTIONS (4)
  - ANAPHYLACTIC SHOCK [None]
  - APPLICATION SITE SWELLING [None]
  - BLOOD CREATINE PHOSPHOKINASE INCREASED [None]
  - INFUSION SITE EXTRAVASATION [None]
